FAERS Safety Report 5531572-1 (Version None)
Quarter: 2007Q4

REPORT INFORMATION
  Report Type: 
  Country: None (occurrence: None)
  Receive Date: 20071203
  Receipt Date: 20071128
  Transmission Date: 20080405
  Serious: Yes (Other)
  Sender: FDA-Public Use
  Company Number: PHNU2007DE03290

PATIENT
  Age: 61 Year
  Sex: Female
  Weight: 63 kg

DRUGS (3)
  1. VOLTAREN [Suspect]
     Indication: MENISCUS OPERATION
     Dosage: 2DF/DAY
     Route: 048
     Dates: start: 20070921, end: 20070921
  2. VOLTAREN [Suspect]
     Dosage: 3DF/DAY
     Route: 048
     Dates: start: 20070922, end: 20070922
  3. VOLTAREN [Suspect]
     Dosage: 2DF/DAY
     Route: 048
     Dates: start: 20070923, end: 20070923

REACTIONS (7)
  - ALANINE AMINOTRANSFERASE INCREASED [None]
  - ALPHA 2 GLOBULIN DECREASED [None]
  - ASPARTATE AMINOTRANSFERASE INCREASED [None]
  - BLOOD CHOLESTEROL INCREASED [None]
  - BLOOD LACTATE DEHYDROGENASE INCREASED [None]
  - FATIGUE [None]
  - TRANSAMINASES INCREASED [None]
